FAERS Safety Report 5123002-9 (Version None)
Quarter: 2006Q4

REPORT INFORMATION
  Report Type: 
  Country: None (occurrence: None)
  Receive Date: 20061009
  Receipt Date: 20061006
  Transmission Date: 20070319
  Serious: Yes (Other)
  Sender: FDA-Public Use
  Company Number: US-GLAXOSMITHKLINE-A0622722A

PATIENT
  Age: 60 Year
  Sex: Male

DRUGS (2)
  1. CITRUCEL [Suspect]
     Indication: GASTROINTESTINAL DISORDER
     Dosage: 2CAPL AT NIGHT
     Route: 048
  2. LIPITOR [Concomitant]

REACTIONS (2)
  - ATRIAL FIBRILLATION [None]
  - CONDITION AGGRAVATED [None]
